FAERS Safety Report 6056305-4 (Version None)
Quarter: 2009Q1

REPORT INFORMATION
  Report Type: 
  Country: None (occurrence: None)
  Receive Date: 20090129
  Receipt Date: 20080901
  Transmission Date: 20090719
  Serious: Yes (Other)
  Sender: FDA-Public Use
  Company Number: DE-SANOFI-SYNTHELABO-A01200810481

PATIENT
  Age: 75 Year
  Sex: Female
  Weight: 65 kg

DRUGS (2)
  1. ISCOVER [Suspect]
     Indication: SUICIDE ATTEMPT
     Route: 048
     Dates: start: 20080831, end: 20080831
  2. MELNEURIN [Suspect]
     Indication: SUICIDE ATTEMPT
     Route: 048
     Dates: start: 20080831, end: 20080831

REACTIONS (4)
  - DIZZINESS [None]
  - INTENTIONAL OVERDOSE [None]
  - SALIVARY HYPERSECRETION [None]
  - SOMNOLENCE [None]
